FAERS Safety Report 7028835-X (Version None)
Quarter: 2010Q3

REPORT INFORMATION
  Report Type: 
  Country: None (occurrence: None)
  Receive Date: 20100830
  Receipt Date: 20100819
  Transmission Date: 20110219
  Serious: Yes (Other)
  Sender: FDA-Public Use
  Company Number: US-145044

PATIENT
  Sex: Female
  Weight: 45.3597 kg

DRUGS (3)
  1. WINRHO [Suspect]
     Indication: IDIOPATHIC THROMBOCYTOPENIC PURPURA
     Dosage: INTRAVENOUS (NOT OTHERWISE SPECIFIED)
     Route: 042
     Dates: start: 20030213, end: 20030213
  2. BENADRYL [Concomitant]
  3. GAMMAGARD S/D [Concomitant]

REACTIONS (2)
  - ERYTHEMA INFECTIOSUM [None]
  - HAEMOLYSIS [None]
